FAERS Safety Report 4846050-2 (Version None)
Quarter: 2005Q4

REPORT INFORMATION
  Report Type: 
  Country: None (occurrence: None)
  Receive Date: 20051130
  Receipt Date: 20051117
  Transmission Date: 20060501
  Serious: Yes (Other)
  Sender: FDA-Public Use
  Company Number: HQWYE396012SEP05

PATIENT
  Age: 37 Year
  Sex: Male

DRUGS (13)
  1. RAPAMUNE [Suspect]
     Indication: PROPHYLAXIS AGAINST TRANSPLANT REJECTION
     Dosage: SEE IMAGE
     Route: 048
     Dates: start: 20050829, end: 20050829
  2. RAPAMUNE [Suspect]
     Indication: PROPHYLAXIS AGAINST TRANSPLANT REJECTION
     Dosage: SEE IMAGE
     Route: 048
     Dates: start: 20050830, end: 20050831
  3. RAPAMUNE [Suspect]
     Indication: PROPHYLAXIS AGAINST TRANSPLANT REJECTION
     Dosage: SEE IMAGE
     Route: 048
     Dates: start: 20050901, end: 20050907
  4. RAPAMUNE [Suspect]
     Indication: PROPHYLAXIS AGAINST TRANSPLANT REJECTION
     Dosage: SEE IMAGE
     Route: 048
     Dates: start: 20050908, end: 20050911
  5. CELLCEPT [Concomitant]
  6. RANITIDINE [Concomitant]
  7. GANCICLOVIR SODIUM [Concomitant]
  8. SEPTRA [Concomitant]
  9. FERRIC HYDROXIDE COLLOIDAL (FERRIC HYDROXIDE COLLOIDAL) [Concomitant]
  10. FOLIC ACID [Concomitant]
  11. ARANESP [Concomitant]
  12. METHYLPREDNISOLONE [Concomitant]
  13. FUROSEMIDE [Concomitant]

REACTIONS (4)
  - DRUG INEFFECTIVE [None]
  - HYPERCALCAEMIA [None]
  - HYPOCALCAEMIA [None]
  - KIDNEY TRANSPLANT REJECTION [None]
